FAERS Safety Report 8317933 (Version 2)
Quarter: 2013Q1

REPORT INFORMATION
  Report Type: Report from Study
  Country: DE (occurrence: DE)
  Receive Date: 20120102
  Receipt Date: 20130129
  Transmission Date: 20140127
  Serious: Yes (Hospitalization)
  Sender: FDA-Public Use
  Company Number: DE-ROCHE-790954

PATIENT
  Age: 73 Year
  Sex: Female
  Weight: 75 kg

DRUGS (20)
  1. RITUXIMAB [Suspect]
     Indication: B-CELL LYMPHOMA
     Dosage: INFUSION AND MOST RECENT DOSE PRIOR TO SAE 04 JULY 2011
     Route: 042
  2. RITUXIMAB [Suspect]
     Dosage: CY2
     Route: 042
  3. RITUXIMAB [Suspect]
     Dosage: CY 3
     Route: 042
  4. RITUXIMAB [Suspect]
     Dosage: CY 4
     Route: 042
  5. RITUXIMAB [Suspect]
     Dosage: CY 5
     Route: 042
  6. BENDAMUSTINE [Suspect]
     Indication: B-CELL LYMPHOMA
     Dosage: INFUSION AND MOST RECENT DOSE PRIOR TO SAE 04 JULY 2011
     Route: 042
  7. BENDAMUSTINE [Suspect]
     Dosage: 2 CY
     Route: 042
  8. BENDAMUSTINE [Suspect]
     Dosage: 3 CY
     Route: 042
  9. BENDAMUSTINE [Suspect]
     Dosage: 4 CY
     Route: 042
  10. BENDAMUSTINE [Suspect]
     Dosage: 5 CY
     Route: 042
  11. CLEXANE [Concomitant]
     Route: 065
  12. IONOSTERIL [Concomitant]
     Dosage: TDD : 1000 ML
     Route: 065
  13. ASS [Concomitant]
     Route: 065
  14. HYDROCHLOROTHIAZIDE [Concomitant]
     Dosage: HALF DOSE FORM PER DAY
     Route: 065
  15. VOTUM [Concomitant]
     Dosage: DOSE : UNKNOWN
     Route: 065
  16. MIRTAZAPIN [Concomitant]
     Route: 065
  17. FENISTIL [Concomitant]
  18. EUTHYROX [Concomitant]
     Route: 065
  19. OLMESARTAN [Concomitant]
     Dosage: 0.5 DFX1D
     Route: 065
  20. CITALOPRAM [Concomitant]
     Dosage: 1/2 DOSE FORM PER DAY 1 DF
     Route: 065

REACTIONS (3)
  - General physical health deterioration [Recovered/Resolved]
  - Gastroenteritis [Recovered/Resolved]
  - Diarrhoea [Recovered/Resolved]
